FAERS Safety Report 8720249 (Version 3)
Quarter: 2013Q1

REPORT INFORMATION
  Report Type: Report from Study
  Country: AU (occurrence: AU)
  Receive Date: 20120813
  Receipt Date: 20130114
  Transmission Date: 20140127
  Serious: Yes (Life-Threatening, Hospitalization, Disabling, Other)
  Sender: FDA-Public Use
  Company Number: PHHY2012AU069396

PATIENT
  Age: 31 Year
  Sex: Male
  Weight: 166 kg

DRUGS (8)
  1. CLOZARIL [Suspect]
     Indication: SCHIZOPHRENIA
     Dosage: 525 MG, UNK
     Route: 048
     Dates: start: 20070321
  2. CLOZARIL [Suspect]
     Dosage: 375 MG, QD
     Route: 048
  3. CLOZARIL [Suspect]
     Dosage: 525 MG, (50 MG MANE, 25 MG MID AND 450 MG NOCTE)
     Route: 048
     Dates: start: 20120811
  4. CLOZARIL [Suspect]
     Dosage: 300 MG, DAILY
     Dates: start: 20120821
  5. CLOZARIL [Suspect]
     Dosage: 375 MG, DAILY
     Dates: start: 20120921
  6. CITAPRAM [Concomitant]
     Indication: DEPRESSION
     Dosage: 60 MG, DAILY
  7. FRUSEMIDE [Concomitant]
     Indication: CARDIAC FAILURE CONGESTIVE
     Dosage: 80 MG, BID
  8. PERINDOPRIL [Concomitant]
     Dosage: 5 MG, MANE
     Route: 048

REACTIONS (7)
  - Respiratory failure [Recovering/Resolving]
  - Pneumonia [Recovering/Resolving]
  - White blood cell count increased [Recovered/Resolved]
  - Neutrophil count increased [Recovered/Resolved]
  - Pyrexia [Recovered/Resolved]
  - Respiratory arrest [Unknown]
  - Antipsychotic drug level increased [Unknown]
